FAERS Safety Report 5245762-9 (Version None)
Quarter: 2007Q1

REPORT INFORMATION
  Report Type: 
  Country: None (occurrence: None)
  Receive Date: 20070223
  Receipt Date: 20070213
  Transmission Date: 20070707
  Serious: Yes (Death, Hospitalization)
  Sender: FDA-Public Use
  Company Number: IT-PFIZER INC-2007012661

PATIENT
  Sex: Female
  Weight: 50 kg

DRUGS (1)
  1. SU-011,248 [Suspect]
     Indication: RENAL CANCER METASTATIC
     Route: 048
     Dates: start: 20061108, end: 20061128

REACTIONS (7)
  - ASTHENIA [None]
  - DYSPNOEA [None]
  - HYPONATRAEMIA [None]
  - MUCOSAL INFLAMMATION [None]
  - MYOGLOBIN BLOOD INCREASED [None]
  - SEDATION [None]
  - TROPONIN INCREASED [None]
